FAERS Safety Report 8896101 (Version 2)
Quarter: 2012Q4

REPORT INFORMATION
  Report Type: 
  Country: JP (occurrence: JP)
  Receive Date: 20121108
  Receipt Date: 20121119
  Transmission Date: 20130627
  Serious: Yes (Other)
  Sender: FDA-Public Use
  Company Number: JP-ROCHE-1153350

PATIENT
  Age: 72 Year
  Sex: Male

DRUGS (3)
  1. AVASTIN [Suspect]
     Indication: COLON CANCER METASTATIC
     Dosage: Dosage is uncertain.
     Route: 041
  2. XELODA [Suspect]
     Indication: COLON CANCER METASTATIC
     Dosage: Dosage is uncertain.
     Route: 048
  3. ELPLAT [Concomitant]
     Indication: COLON CANCER METASTATIC
     Dosage: Dosage is uncertain.
     Route: 041

REACTIONS (4)
  - Post procedural fistula [Recovering/Resolving]
  - Hepatic artery aneurysm [Recovering/Resolving]
  - Aneurysm ruptured [Recovering/Resolving]
  - Haemobilia [Recovering/Resolving]
